FAERS Safety Report 9571996 (Version 3)
Quarter: 2013Q4

REPORT INFORMATION
  Report Type: Spontaneous
  Country: US (occurrence: US)
  Receive Date: 20131001
  Receipt Date: 20131231
  Transmission Date: 20140711
  Serious: Yes (Other)
  Sender: FDA-Public Use
  Company Number: US-PFIZER INC-2013279617

PATIENT
  Age: 71 Year
  Sex: Female

DRUGS (2)
  1. EFFEXOR XR [Suspect]
     Dosage: 37.5 OR 75 MG
  2. PROTONIX [Suspect]
     Dosage: UNK

REACTIONS (1)
  - Arthropathy [Unknown]
